FAERS Safety Report 12939947 (Version 2)
Quarter: 2017Q1

REPORT INFORMATION
  Report Type: Spontaneous
  Country: US (occurrence: US)
  Receive Date: 20161115
  Receipt Date: 20170131
  Transmission Date: 20170428
  Serious: No
  Sender: FDA-Public Use
  Company Number: US-ASTRAZENECA-2016SF10317

PATIENT
  Age: 66 Year
  Sex: Male
  Weight: 104.3 kg

DRUGS (4)
  1. DIURETIC [Concomitant]
     Active Substance: UNSPECIFIED INGREDIENT
     Indication: DIURETIC THERAPY
  2. LOSARTIN [Concomitant]
     Active Substance: LOSARTAN
     Indication: BLOOD PRESSURE ABNORMAL
     Route: 048
     Dates: start: 2004
  3. MULTAQ [Concomitant]
     Active Substance: DRONEDARONE
     Indication: SUPRAVENTRICULAR EXTRASYSTOLES
     Route: 048
     Dates: start: 2014
  4. SYMBICORT [Suspect]
     Active Substance: BUDESONIDE\FORMOTEROL FUMARATE DIHYDRATE
     Indication: ASTHMA
     Dosage: 160/4.5 MCG, 2 PUFFS 2 TIMES DAILY
     Route: 055
     Dates: start: 2013

REACTIONS (6)
  - Device malfunction [Unknown]
  - Drug dose omission [Unknown]
  - Intentional product misuse [Unknown]
  - Supraventricular extrasystoles [Unknown]
  - Pulmonary congestion [Unknown]
  - Hypersensitivity [Unknown]

NARRATIVE: CASE EVENT DATE: 2014
